FAERS Safety Report 8390147 (Version 2)
Quarter: 2018Q3

REPORT INFORMATION
  Report Type: Spontaneous
  Country: FR (occurrence: FR)
  Receive Date: 20120203
  Receipt Date: 20180912
  Transmission Date: 20181010
  Serious: Yes (Hospitalization)
  Sender: FDA-Public Use
  Company Number: FR-PFIZER INC-2012025442

PATIENT
  Age: 54 Year
  Sex: Female

DRUGS (10)
  1. ESCITALOPRAM [Concomitant]
     Active Substance: ESCITALOPRAM OXALATE
  2. IMOVANE [Concomitant]
     Active Substance: ZOPICLONE
  3. LEVOTHYROX [Concomitant]
     Active Substance: LEVOTHYROXINE
  4. INEXIUM [Concomitant]
     Active Substance: ESOMEPRAZOLE
  5. LYRICA [Suspect]
     Active Substance: PREGABALIN
     Dosage: 100 MG, 3X/DAY
     Route: 048
     Dates: start: 201112, end: 20120117
  6. EZETROL [Concomitant]
     Active Substance: EZETIMIBE
  7. GLUCOR [Concomitant]
     Active Substance: ACARBOSE
  8. ABILIFY [Concomitant]
     Active Substance: ARIPIPRAZOLE
  9. THERALENE [Concomitant]
     Active Substance: TRIMEPRAZINE
  10. LYSANXIA [Concomitant]
     Active Substance: PRAZEPAM

REACTIONS (3)
  - Abdominal pain upper [Recovering/Resolving]
  - Pancreatitis acute [Recovering/Resolving]
  - Lipase increased [Recovering/Resolving]

NARRATIVE: CASE EVENT DATE: 20120116
